FAERS Safety Report 21034785 (Version 7)
Quarter: 2022Q3

REPORT INFORMATION
  Report Type: Spontaneous
  Country: US (occurrence: US)
  Receive Date: 20220701
  Receipt Date: 20220906
  Transmission Date: 20221026
  Serious: Yes (Hospitalization, Other)
  Sender: FDA-Public Use
  Company Number: US-PFIZER INC-PV202200012408

PATIENT
  Age: 62 Year
  Sex: Female
  Weight: 76.19 kg

DRUGS (19)
  1. CIBINQO [Suspect]
     Active Substance: ABROCITINIB
     Indication: Dermatitis
     Dosage: 100 MG, 1X/DAY
     Route: 048
     Dates: start: 202205, end: 20220612
  2. CIBINQO [Suspect]
     Active Substance: ABROCITINIB
     Indication: Eczema
  3. CIBINQO [Suspect]
     Active Substance: ABROCITINIB
     Indication: Pruritus
  4. BETAMETHASONE DIPROPIONATE [Concomitant]
     Active Substance: BETAMETHASONE DIPROPIONATE
     Dosage: 1 DF, 2X/DAY (APPLY BID UNTIL CLEAR)
     Route: 061
     Dates: start: 20211227
  5. ELIDEL [Concomitant]
     Active Substance: PIMECROLIMUS
     Dosage: 1 DF, 2X/DAY
     Route: 061
     Dates: start: 20220420
  6. OPZELURA [Concomitant]
     Active Substance: RUXOLITINIB PHOSPHATE
     Dosage: 1 DF, 2X/DAY
     Route: 061
     Dates: start: 20220812
  7. PERMETHRIN [Concomitant]
     Active Substance: PERMETHRIN
     Dosage: 1 DF, AS NEEDED, (APPLY HEAD TO TOE LEAVE ON OVERNIGHT. RINSE IN THE MORNING, PRN)
     Route: 061
     Dates: start: 20220620
  8. TRIAMCINOLONE ACETONIDE [Concomitant]
     Active Substance: TRIAMCINOLONE ACETONIDE
     Dosage: 0.1 %, 2X/DAY (APPLY BID TO BODY 2 WEEKS ON TWO WEEKS OFF)
     Route: 061
     Dates: start: 20220208
  9. ASPIRIN [Concomitant]
     Active Substance: ASPIRIN
     Dosage: 325 MG, 1X/DAY
     Route: 048
  10. BUPROPION HYDROCHLORIDE [Concomitant]
     Active Substance: BUPROPION HYDROCHLORIDE
     Dosage: 300 MG, 1X/DAY
     Route: 048
  11. CALTRATE 600 +D PLUS [Concomitant]
     Dosage: 1 DF, 1X/DAY
     Route: 048
  12. ESOMEPRAZOLE MAGNESIUM [Concomitant]
     Active Substance: ESOMEPRAZOLE MAGNESIUM
     Dosage: 20 MG, 1X/DAY
     Route: 048
  13. FENOFIBRATE [Concomitant]
     Active Substance: FENOFIBRATE
     Dosage: 160 MG, 1X/DAY
     Route: 048
  14. HYDROXYCHLOROQUINE [Concomitant]
     Active Substance: HYDROXYCHLOROQUINE
     Dosage: 2 DF, 1X/DAY, (DOSE 2)
     Route: 048
  15. LISINOPRIL [Concomitant]
     Active Substance: LISINOPRIL
     Dosage: 15 MG, 1X/DAY
     Route: 048
  16. METOPROLOL SUCCINATE [Concomitant]
     Active Substance: METOPROLOL SUCCINATE
     Dosage: 100 MG, 1X/DAY
     Route: 048
  17. SULFASALAZINE [Concomitant]
     Active Substance: SULFASALAZINE
     Dosage: 500 MG, 1X/DAY
     Route: 048
  18. AMLODIPINE [Concomitant]
     Active Substance: AMLODIPINE BESYLATE
     Dosage: 5 MG, 1X/DAY
     Route: 048
  19. COENZYME Q10 [Concomitant]
     Active Substance: DIETARY SUPPLEMENT\UBIDECARENONE
     Dosage: 1 DF, 1X/DAY
     Route: 048

REACTIONS (4)
  - Hypertension [Recovered/Resolved]
  - Cerebrovascular accident [Recovered/Resolved]
  - Condition aggravated [Unknown]
  - Rash [Unknown]

NARRATIVE: CASE EVENT DATE: 20220101
